FAERS Safety Report 15599728 (Version 2)
Quarter: 2019Q2

REPORT INFORMATION
  Report Type: Report from Study
  Country: US (occurrence: US)
  Receive Date: 20181108
  Receipt Date: 20190417
  Transmission Date: 20190711
  Serious: Yes (Other)
  Sender: FDA-Public Use
  Company Number: US-ACTELION-A-US2018-181347

PATIENT
  Age: 61 Year
  Sex: Female

DRUGS (10)
  1. SILDENAFIL. [Concomitant]
     Active Substance: SILDENAFIL
  2. ASPIRIN. [Concomitant]
     Active Substance: ASPIRIN
     Dosage: 81 MG, QD
  3. FUROSEMIDE. [Concomitant]
     Active Substance: FUROSEMIDE
  4. SIMVASTATIN. [Concomitant]
     Active Substance: SIMVASTATIN
  5. POTASSIUM CHLORIDE. [Concomitant]
     Active Substance: POTASSIUM CHLORIDE
  6. OPSUMIT [Suspect]
     Active Substance: MACITENTAN
     Indication: PULMONARY ARTERIAL HYPERTENSION
     Dosage: 10 MG, QD
     Route: 048
     Dates: start: 201706
  7. SPIRONOLACTONE. [Concomitant]
     Active Substance: SPIRONOLACTONE
  8. PEG 3350 [Concomitant]
     Active Substance: POLYETHYLENE GLYCOL 3350
  9. DIGOXIN. [Concomitant]
     Active Substance: DIGOXIN
  10. BISACODYL. [Concomitant]
     Active Substance: BISACODYL

REACTIONS (3)
  - Puncture site haemorrhage [Recovered/Resolved]
  - Epistaxis [Recovered/Resolved]
  - Groin pain [Unknown]

NARRATIVE: CASE EVENT DATE: 201810
